FAERS Safety Report 18491225 (Version 1)
Quarter: 2020Q4

REPORT INFORMATION
  Report Type: Spontaneous
  Country: GB (occurrence: GB)
  Receive Date: 20201111
  Receipt Date: 20201111
  Transmission Date: 20210114
  Serious: Yes (Other)
  Sender: FDA-Public Use
  Company Number: GB-BAXTER-2020BAX022650

PATIENT
  Sex: Female

DRUGS (4)
  1. SODIUM CHLORIDE 0.9% INTRAVENOUS INFUSION BP [Suspect]
     Active Substance: SODIUM CHLORIDE
     Indication: MEDICATION DILUTION
     Route: 065
  2. GEMCITABINE. [Suspect]
     Active Substance: GEMCITABINE
     Indication: PRODUCT USED FOR UNKNOWN INDICATION
     Route: 065
  3. CARBOPLATIN. [Suspect]
     Active Substance: CARBOPLATIN
     Indication: PRODUCT USED FOR UNKNOWN INDICATION
     Route: 065
  4. GLUCOSE 5% INTRAVENOUS INFUSION BP [Suspect]
     Active Substance: DEXTROSE
     Indication: MEDICATION DILUTION
     Route: 065

REACTIONS (2)
  - Renal impairment [Unknown]
  - Hepatic function abnormal [Unknown]
